FAERS Safety Report 14163820 (Version 2)
Quarter: 2017Q4

REPORT INFORMATION
  Report Type: Spontaneous
  Country: US (occurrence: US)
  Receive Date: 20171106
  Receipt Date: 20171107
  Transmission Date: 20180321
  Serious: Yes (Hospitalization)
  Sender: FDA-Public Use
  Company Number: US-CELGENEUS-USA-20171100901

PATIENT
  Sex: Male

DRUGS (1)
  1. THALOMID [Suspect]
     Active Substance: THALIDOMIDE
     Indication: NEOPLASM
     Dosage: 100 MILLIGRAM
     Route: 048
     Dates: start: 201707

REACTIONS (3)
  - Cholecystitis infective [Unknown]
  - Kidney infection [Unknown]
  - Nephrolithiasis [Unknown]
